FAERS Safety Report 13399740 (Version 1)
Quarter: 2017Q2

REPORT INFORMATION
  Report Type: Spontaneous
  Country: US (occurrence: US)
  Receive Date: 20170404
  Receipt Date: 20170404
  Transmission Date: 20170830
  Serious: Yes (Other)
  Sender: FDA-Public Use
  Company Number: US-RECKITT BENCKISER HEALTHCARE INT LIMITED-RB-83588-2017

PATIENT
  Age: 4 Year
  Sex: Male

DRUGS (1)
  1. DELSYM [Suspect]
     Active Substance: DEXTROMETHORPHAN
     Indication: PRODUCT USED FOR UNKNOWN INDICATION
     Dosage: 2.5 MG, BID, PATIENT WAS GIVEN 2.5 MG AT 08:30 AMD AND 2.5 MG AT 2:00 PM
     Route: 065
     Dates: start: 20170330

REACTIONS (3)
  - Somnolence [Not Recovered/Not Resolved]
  - Accidental overdose [Not Recovered/Not Resolved]
  - Drug administered to patient of inappropriate age [Not Recovered/Not Resolved]

NARRATIVE: CASE EVENT DATE: 20170130
